FAERS Safety Report 17788676 (Version 4)
Quarter: 2020Q3

REPORT INFORMATION
  Report Type: Spontaneous
  Country: US (occurrence: US)
  Receive Date: 20200515
  Receipt Date: 20200805
  Transmission Date: 20201102
  Serious: Yes (Hospitalization)
  Sender: FDA-Public Use
  Company Number: US-TAKEDA-2020TUS022324

PATIENT
  Age: 80 Year
  Sex: Female

DRUGS (1)
  1. NINLARO [Suspect]
     Active Substance: IXAZOMIB CITRATE
     Indication: PLASMA CELL MYELOMA
     Dosage: 3 MILLIGRAM
     Route: 048
     Dates: start: 20180417

REACTIONS (5)
  - Ulcer [Unknown]
  - Asthenia [Unknown]
  - Fatigue [Unknown]
  - Abnormal faeces [Unknown]
  - Illness [Unknown]

NARRATIVE: CASE EVENT DATE: 202005
